FAERS Safety Report 9457618 (Version 1)
Quarter: 2013Q3

REPORT INFORMATION
  Report Type: Spontaneous
  Country: US (occurrence: US)
  Receive Date: 20130814
  Receipt Date: 20130814
  Transmission Date: 20140515
  Serious: No
  Sender: FDA-Public Use
  Company Number: US-PFIZER INC-2013233340

PATIENT
  Age: 62 Year
  Sex: 0

DRUGS (2)
  1. FLUCONAZOLE [Suspect]
     Dosage: UNK
     Dates: start: 20130710, end: 20130717
  2. AFINITOR [Interacting]
     Dosage: UNK
     Dates: start: 20130710

REACTIONS (4)
  - Drug interaction [Unknown]
  - Nausea [Unknown]
  - Vomiting [Unknown]
  - Stomatitis [Unknown]
